FAERS Safety Report 7527833-7 (Version None)
Quarter: 2011Q2

REPORT INFORMATION
  Report Type: 
  Country: None (occurrence: None)
  Receive Date: 20110607
  Receipt Date: 20110531
  Transmission Date: 20111010
  Serious: Yes (Other)
  Sender: FDA-Public Use
  Company Number: IN-PFIZER INC-2011117978

PATIENT
  Sex: Male

DRUGS (2)
  1. TYGACIL [Suspect]
     Dosage: 50 MG, UNK
  2. DORIPENEM MONOHYDRATE [Suspect]
     Dosage: 500 MG, UNK

REACTIONS (2)
  - DRUG INEFFECTIVE [None]
  - PLEURAL EFFUSION [None]
